FAERS Safety Report 26201811 (Version 1)
Quarter: 2025Q4

REPORT INFORMATION
  Report Type: Spontaneous
  Country: TR (occurrence: TR)
  Receive Date: 20251226
  Receipt Date: 20251226
  Transmission Date: 20260117
  Serious: Yes (Other)
  Sender: TAKEDA
  Company Number: TR-TAKEDA-2025TUS116130

PATIENT
  Age: 31 Year
  Sex: Female
  Weight: 60 kg

DRUGS (1)
  1. COLCHICINE [Suspect]
     Active Substance: COLCHICINE
     Indication: Behcet^s syndrome
     Dosage: 30 MILLIGRAM

REACTIONS (17)
  - Thrombocytopenia [Unknown]
  - Myelosuppression [Unknown]
  - Back pain [Unknown]
  - Chest pain [Unknown]
  - Leukocytosis [Unknown]
  - Haematuria [Unknown]
  - Lymphopenia [Unknown]
  - Alopecia [Unknown]
  - Platelet count decreased [Unknown]
  - Troponin increased [Unknown]
  - Myalgia [Unknown]
  - Neutrophilia [Unknown]
  - Overdose [Unknown]
  - Abdominal pain [Unknown]
  - Diarrhoea [Unknown]
  - Nausea [Unknown]
  - Vomiting [Unknown]
